FAERS Safety Report 9398879 (Version 4)
Quarter: 2013Q4

REPORT INFORMATION
  Report Type: Report from Study
  Country: JP (occurrence: JP)
  Receive Date: 20130712
  Receipt Date: 20131210
  Transmission Date: 20140711
  Serious: Yes (Other)
  Sender: FDA-Public Use
  Company Number: JP-JNJFOC-20130703066

PATIENT
  Age: 57 Year
  Sex: Male
  Weight: 68 kg

DRUGS (14)
  1. STELARA [Suspect]
     Indication: PSORIASIS
     Route: 058
     Dates: start: 20131009
  2. STELARA [Suspect]
     Indication: PSORIASIS
     Route: 058
     Dates: start: 20130712, end: 20130712
  3. STELARA [Suspect]
     Indication: PSORIASIS
     Route: 058
     Dates: start: 20130426, end: 20130426
  4. STELARA [Suspect]
     Indication: PSORIASIS
     Route: 058
     Dates: start: 20130111, end: 20130111
  5. STELARA [Suspect]
     Indication: PSORIASIS
     Route: 058
     Dates: start: 20121019, end: 20121019
  6. STELARA [Suspect]
     Indication: PSORIASIS
     Route: 058
     Dates: start: 20120921, end: 20120921
  7. BAYASPIRIN [Concomitant]
     Indication: ANGINA PECTORIS
     Route: 048
  8. CILOSTATE [Concomitant]
     Indication: ANGINA PECTORIS
     Route: 048
  9. LIVALO [Concomitant]
     Route: 048
  10. ARTIST [Concomitant]
     Indication: ANGINA PECTORIS
     Route: 048
  11. DERMOVATE [Concomitant]
     Indication: PSORIASIS
     Route: 061
  12. DERMOVATE [Concomitant]
     Indication: PSORIASIS
     Route: 061
  13. OXAROL [Concomitant]
     Indication: PSORIASIS
     Route: 061
  14. OXAROL [Concomitant]
     Indication: PSORIASIS
     Route: 061

REACTIONS (1)
  - Cellulitis [Recovered/Resolved]
